FAERS Safety Report 13306621 (Version 1)
Quarter: 2017Q1

REPORT INFORMATION
  Report Type: Spontaneous
  Country: US (occurrence: US)
  Receive Date: 20170308
  Receipt Date: 20170308
  Transmission Date: 20170428
  Serious: No
  Sender: FDA-Public Use
  Company Number: US-AKORN PHARMACEUTICALS-2016AKN00771

PATIENT
  Sex: Male

DRUGS (6)
  1. MYORISAN [Suspect]
     Active Substance: ISOTRETINOIN
     Dosage: UNK
     Dates: start: 20160629, end: 20161022
  2. MYORISAN [Suspect]
     Active Substance: ISOTRETINOIN
     Dosage: UNK
     Dates: start: 20160629, end: 2016
  3. CLARAVIS [Suspect]
     Active Substance: ISOTRETINOIN
     Dosage: UNK
     Dates: start: 20160825, end: 2016
  4. MYORISAN [Suspect]
     Active Substance: ISOTRETINOIN
     Dosage: UNK
     Dates: start: 20160728, end: 2016
  5. NAPROXEN. [Concomitant]
     Active Substance: NAPROXEN
     Indication: PAIN
     Dosage: UNK, AS NEEDED
  6. CODEINE / ACETAMINOPHEN [Concomitant]
     Indication: OROPHARYNGEAL PAIN
     Dosage: UNK, AS NEEDED

REACTIONS (3)
  - Diarrhoea [Unknown]
  - Headache [Unknown]
  - Blood triglycerides increased [Recovered/Resolved]

NARRATIVE: CASE EVENT DATE: 2016
